FAERS Safety Report 9519657 (Version 1)
Quarter: 2013Q3

REPORT INFORMATION
  Report Type: Spontaneous
  Country: DE (occurrence: DE)
  Receive Date: 20130912
  Receipt Date: 20130912
  Transmission Date: 20140515
  Serious: Yes (Life-Threatening)
  Sender: FDA-Public Use
  Company Number: DE-TEVA-430283GER

PATIENT
  Age: 49 Year
  Sex: Male
  Weight: 84 kg

DRUGS (11)
  1. CLOMIPRAMINE [Suspect]
     Indication: OBSESSIVE-COMPULSIVE DISORDER
     Dosage: 50 MILLIGRAM DAILY;
     Route: 048
     Dates: start: 20130801, end: 20130816
  2. IBUPROFEN [Concomitant]
     Dosage: 1800 MILLIGRAM DAILY;
     Route: 048
  3. CEFTRIAXON [Concomitant]
     Indication: URINARY TRACT INFECTION
  4. VALORON N RETARD 100/8 MG [Concomitant]
     Dosage: 2 DOSAGE FORMS DAILY;
     Route: 048
  5. PANTOZOL [Concomitant]
     Dosage: 20 MILLIGRAM DAILY;
     Route: 048
  6. AMLODIPIN [Concomitant]
     Dosage: 5 MILLIGRAM DAILY;
     Route: 048
  7. BISOPROLOL [Concomitant]
     Dosage: 5 MILLIGRAM DAILY;
     Route: 048
  8. DOXEPIN [Concomitant]
     Dosage: 100 MILLIGRAM DAILY;
     Route: 048
  9. FLUOXETIN [Concomitant]
     Dosage: 40 MILLIGRAM DAILY;
     Route: 048
  10. RISPERIDON [Concomitant]
     Dosage: 6 MILLIGRAM DAILY;
     Route: 048
  11. COUMADIN [Concomitant]
     Dosage: AFTER SCHEDULE
     Route: 048

REACTIONS (2)
  - Renal failure acute [Recovering/Resolving]
  - Rhabdomyolysis [Recovering/Resolving]
